FAERS Safety Report 8100191-5 (Version None)
Quarter: 2012Q1

REPORT INFORMATION
  Report Type: 
  Country: None (occurrence: None)
  Receive Date: 20120129
  Receipt Date: 20111101
  Transmission Date: 20120608
  Serious: No
  Sender: FDA-Public Use
  Company Number: US-ABBOTT-11P-163-0850488-00

PATIENT
  Sex: Female

DRUGS (3)
  1. ENTOCORT EC [Concomitant]
     Indication: PRODUCT USED FOR UNKNOWN INDICATION
     Dosage: 3  MG TID
  2. HUMIRA [Suspect]
     Indication: CROHN'S DISEASE
     Dosage: 40MG EVERY OTHER WEEK
     Dates: start: 20010825
  3. LEXAPRO [Concomitant]
     Indication: ANXIETY
     Dosage: 10 MG DAILY

REACTIONS (4)
  - INJECTION SITE HAEMORRHAGE [None]
  - INJECTION SITE HAEMATOMA [None]
  - WRONG TECHNIQUE IN DRUG USAGE PROCESS [None]
  - DRUG DOSE OMISSION [None]
